FAERS Safety Report 8932957 (Version 1)
Quarter: 2012Q4

REPORT INFORMATION
  Report Type: 
  Country: NL (occurrence: NL)
  Receive Date: 20121129
  Receipt Date: 20121129
  Transmission Date: 20130627
  Serious: Yes (Death)
  Sender: FDA-Public Use
  Company Number: PHHY2012NL108722

PATIENT
  Age: 68 Year
  Sex: Male

DRUGS (4)
  1. ZOMETA [Suspect]
     Indication: METASTASIS
     Dosage: 4 mg per 100ml once in 28 Days
     Route: 042
  2. ZOMETA [Suspect]
     Dosage: 4 mg per 100ml once in 28 Days
     Route: 042
     Dates: start: 20120809
  3. ZOMETA [Suspect]
     Dosage: 4 mg per 100ml once in 28 Days
     Route: 042
     Dates: start: 20121004
  4. ZOMETA [Suspect]
     Dosage: 4 mg per 100ml once in 28 Days
     Route: 042
     Dates: start: 20121101

REACTIONS (2)
  - Death [Fatal]
  - Chest pain [None]
